FAERS Safety Report 5322890-0 (Version None)
Quarter: 2007Q2

REPORT INFORMATION
  Report Type: 
  Country: None (occurrence: None)
  Receive Date: 20070511
  Receipt Date: 20070507
  Transmission Date: 20071010
  Serious: Yes (Other)
  Sender: FDA-Public Use
  Company Number: US-PFIZER INC-2007036559

PATIENT
  Sex: Female
  Weight: 78.181 kg

DRUGS (5)
  1. CHANTIX [Suspect]
     Indication: SMOKING CESSATION THERAPY
  2. XANAX [Concomitant]
  3. BENADRYL [Concomitant]
  4. PROMETHAZINE [Concomitant]
  5. PRILOSEC [Concomitant]

REACTIONS (4)
  - ADVERSE DRUG REACTION [None]
  - DYSGEUSIA [None]
  - NAUSEA [None]
  - SWOLLEN TONGUE [None]
